FAERS Safety Report 26164132 (Version 1)
Quarter: 2025Q4

REPORT INFORMATION
  Report Type: Spontaneous
  Country: IN (occurrence: IN)
  Receive Date: 20251216
  Receipt Date: 20251216
  Transmission Date: 20260117
  Serious: Yes (Hospitalization, Other)
  Sender: CIPLA
  Company Number: IN-MLMSERVICE-20250630-PI558646-00213-2

PATIENT

DRUGS (17)
  1. AMANTADINE [Suspect]
     Active Substance: AMANTADINE
     Indication: Product used for unknown indication
     Dosage: 129 MILLIGRAM, QD
     Route: 065
     Dates: start: 202311, end: 202311
  2. DULOXETINE [Suspect]
     Active Substance: DULOXETINE
     Indication: Peripheral coldness
     Dosage: 20 MILLIGRAM, QD
     Route: 065
     Dates: start: 202308
  3. MEMANTINE [Suspect]
     Active Substance: MEMANTINE
     Indication: Product used for unknown indication
     Dosage: 10 MILLIGRAM, QD
     Route: 065
     Dates: start: 202311
  4. PREGABALIN [Concomitant]
     Active Substance: PREGABALIN
     Indication: Pain in extremity
     Dosage: 75 MILLIGRAM, 1-3 TIMES/WEEK
     Route: 048
     Dates: start: 2009
  5. ALBUTEROL\BUDESONIDE [Concomitant]
     Active Substance: ALBUTEROL\BUDESONIDE
     Indication: Peripheral coldness
     Dosage: UNK, PRN
     Route: 045
     Dates: start: 2009
  6. SPIRONOLACTONE\TORSEMIDE [Concomitant]
     Active Substance: SPIRONOLACTONE\TORSEMIDE
     Indication: Oedema peripheral
     Dosage: UNK, PRN (INTERMITTENT)
     Route: 065
     Dates: start: 2022
  7. DUTASTERIDE\TAMSULOSIN HYDROCHLORIDE [Concomitant]
     Active Substance: DUTASTERIDE\TAMSULOSIN HYDROCHLORIDE
     Indication: Product used for unknown indication
     Dosage: UNK
     Route: 065
     Dates: start: 2023
  8. QUETIAPINE [Concomitant]
     Active Substance: QUETIAPINE
     Indication: Hallucination, visual
     Dosage: 50 MILLIGRAM, QD
     Route: 065
     Dates: start: 202311, end: 202311
  9. QUETIAPINE [Concomitant]
     Active Substance: QUETIAPINE
     Indication: Speech disorder
     Dosage: 75 MILLIGRAM, QD
     Route: 065
     Dates: start: 202311
  10. QUETIAPINE [Concomitant]
     Active Substance: QUETIAPINE
     Indication: Insomnia
  11. DONEPEZIL [Concomitant]
     Active Substance: DONEPEZIL
     Indication: Hallucination, visual
     Dosage: 10 MILLIGRAM, QD
     Route: 065
     Dates: start: 202311
  12. DONEPEZIL [Concomitant]
     Active Substance: DONEPEZIL
     Indication: Speech disorder
  13. DONEPEZIL [Concomitant]
     Active Substance: DONEPEZIL
     Indication: Insomnia
  14. LINAGLIPTIN [Concomitant]
     Active Substance: LINAGLIPTIN
     Indication: Product used for unknown indication
     Dosage: UNK
     Route: 065
     Dates: start: 2023
  15. RASAGILINE [Concomitant]
     Active Substance: RASAGILINE
     Indication: Tremor
     Dosage: 1 MILLIGRAM, QD
     Route: 065
     Dates: start: 202311
  16. RASAGILINE [Concomitant]
     Active Substance: RASAGILINE
     Indication: Decreased gait velocity
  17. RASAGILINE [Concomitant]
     Active Substance: RASAGILINE
     Indication: Speech disorder

REACTIONS (3)
  - Neuropsychological symptoms [Recovered/Resolved]
  - Psychotic disorder [Unknown]
  - Insomnia [Unknown]

NARRATIVE: CASE EVENT DATE: 20231101
